FAERS Safety Report 8461421-3 (Version None)
Quarter: 2012Q2

REPORT INFORMATION
  Report Type: 
  Country: None (occurrence: None)
  Receive Date: 20120625
  Receipt Date: 20120617
  Transmission Date: 20120825
  Serious: Yes (Other)
  Sender: FDA-Public Use
  Company Number: BR-BAYER-2012-059972

PATIENT
  Age: 43 Year
  Sex: Female

DRUGS (2)
  1. MIRENA [Suspect]
     Dosage: 20 ?G/D, CONT
     Route: 015
     Dates: start: 20120601
  2. UNCODEABLE ^UNCLASSIFIABLE^ [Concomitant]
     Indication: SEDATIVE THERAPY

REACTIONS (5)
  - DEVICE DISLOCATION [None]
  - ABDOMINAL PAIN [None]
  - PYREXIA [None]
  - INTESTINAL PERFORATION [None]
  - ABDOMINAL INFECTION [None]
